FAERS Safety Report 5313842-5 (Version None)
Quarter: 2007Q2

REPORT INFORMATION
  Report Type: 
  Country: None (occurrence: None)
  Receive Date: 20070501
  Receipt Date: 20070424
  Transmission Date: 20071010
  Serious: Yes (Hospitalization)
  Sender: FDA-Public Use
  Company Number: GB-GLAXOSMITHKLINE-B0456399A

PATIENT
  Age: 36 Year
  Sex: Female

DRUGS (4)
  1. ZYBAN [Suspect]
     Route: 048
     Dates: start: 20061219
  2. RANITIDINE [Concomitant]
  3. CONTRACEPTIVE PILL [Concomitant]
  4. FLUOXETINE [Concomitant]

REACTIONS (5)
  - BLINDNESS [None]
  - DIABETES MELLITUS INSULIN-DEPENDENT [None]
  - VISION BLURRED [None]
  - VISUAL ACUITY REDUCED [None]
  - VISUAL DISTURBANCE [None]
